FAERS Safety Report 4690792-9 (Version None)
Quarter: 2005Q2

REPORT INFORMATION
  Report Type: 
  Country: None (occurrence: None)
  Receive Date: 20050613
  Receipt Date: 20050531
  Transmission Date: 20051028
  Serious: Yes (Hospitalization)
  Sender: FDA-Public Use
  Company Number: US-2005-009361

PATIENT
  Age: 65 Year
  Sex: Male

DRUGS (6)
  1. LEUKINE [Suspect]
     Indication: CROHN'S DISEASE
     Dosage: 6 UG/KG, 1X/DAY QHS, SUBCUTANEOUS
     Route: 058
     Dates: start: 20050511, end: 20050526
  2. AZULFIDINE [Concomitant]
  3. TYLENOL [Concomitant]
  4. TUMS [Concomitant]
  5. BENADRYL ^PFIZER WARNER-LAMBERT^ (DIPHENHYDRAMINE HYDROCHLORIDE) [Concomitant]
  6. VASOTEC [Concomitant]

REACTIONS (2)
  - DRUG DOSE OMISSION [None]
  - MYOCARDIAL INFARCTION [None]
